FAERS Safety Report 9721638 (Version 1)
Quarter: 2013Q4

REPORT INFORMATION
  Report Type: Spontaneous
  Country: US (occurrence: US)
  Receive Date: 20131201
  Receipt Date: 20131201
  Transmission Date: 20140711
  Serious: No
  Sender: FDA-Public Use
  Company Number: US-ABBVIE-13P-163-1153886-00

PATIENT
  Age: 52 Year
  Sex: Male
  Weight: 68.1 kg

DRUGS (3)
  1. ANDROGEL [Suspect]
     Indication: PRODUCT USED FOR UNKNOWN INDICATION
     Dosage: 4-PUMPS DAILY
     Route: 061
     Dates: start: 201308
  2. ATRIPLA [Concomitant]
     Indication: PRODUCT USED FOR UNKNOWN INDICATION
  3. PROTEIN SHAKES [Concomitant]
     Indication: PRODUCT USED FOR UNKNOWN INDICATION

REACTIONS (1)
  - Blood creatinine increased [Not Recovered/Not Resolved]
